FAERS Safety Report 8343855-0 (Version None)
Quarter: 2012Q2

REPORT INFORMATION
  Report Type: 
  Country: None (occurrence: None)
  Receive Date: 20120508
  Receipt Date: 20120430
  Transmission Date: 20120825
  Serious: Yes (Other)
  Sender: FDA-Public Use
  Company Number: US-US-EMD SERONO, INC.-7130397

PATIENT
  Sex: Female
  Weight: 69 kg

DRUGS (1)
  1. SEROSTIM [Suspect]
     Indication: LIPODYSTROPHY ACQUIRED

REACTIONS (1)
  - TYPE 2 DIABETES MELLITUS [None]
